FAERS Safety Report 9474068 (Version 2)
Quarter: 2013Q3

REPORT INFORMATION
  Report Type: Spontaneous
  Country: DE (occurrence: DE)
  Receive Date: 20130823
  Receipt Date: 20130823
  Transmission Date: 20140515
  Serious: Yes (Other)
  Sender: FDA-Public Use
  Company Number: DE-009507513-1306DEU013638

PATIENT
  Age: 78 Year
  Sex: Female
  Weight: 64 kg

DRUGS (7)
  1. INEGY [Suspect]
     Indication: HYPERCHOLESTEROLAEMIA
     Dosage: UNK, QD
     Route: 048
     Dates: start: 2005, end: 20130621
  2. INEGY [Suspect]
     Indication: HYPERLIPIDAEMIA
  3. NEBILET [Concomitant]
     Indication: HYPERTENSION
     Dosage: HALF A TABLET, QD
     Route: 048
     Dates: start: 2010
  4. HEXAL (HEXACHLOROPHENE) [Concomitant]
     Dosage: UNK
     Dates: start: 2001
  5. ASPIRIN [Concomitant]
     Indication: MACROANGIOPATHY
     Dosage: 100 MG, QD
     Route: 048
     Dates: start: 2000
  6. CANDESARTAN CILEXETIL (+) HYDROCHLOROTHIAZIDE [Concomitant]
     Indication: HYPERTENSION
     Dosage: 812.5 MG, QD
     Route: 048
     Dates: start: 2000
  7. PANTOPRAZOLE [Concomitant]
     Indication: REFLUX GASTRITIS
     Dosage: 20 MG, QD
     Route: 048
     Dates: start: 2008

REACTIONS (7)
  - Sensorimotor disorder [Recovering/Resolving]
  - Cardiovascular disorder [Not Recovered/Not Resolved]
  - Myalgia [Recovered/Resolved]
  - Asthenia [Not Recovered/Not Resolved]
  - Paraesthesia [Recovered/Resolved]
  - Muscular weakness [Not Recovered/Not Resolved]
  - Wrong technique in drug usage process [Unknown]
